FAERS Safety Report 13551727 (Version 1)
Quarter: 2017Q2

REPORT INFORMATION
  Report Type: Spontaneous
  Country: LT (occurrence: LT)
  Receive Date: 20170516
  Receipt Date: 20170516
  Transmission Date: 20170830
  Serious: Yes (Hospitalization)
  Sender: FDA-Public Use
  Company Number: LT-UNICHEM LABORATORIES LIMITED-UCM201705-000109

PATIENT
  Sex: Female

DRUGS (1)
  1. LAMOTRIGINE. [Suspect]
     Active Substance: LAMOTRIGINE
     Indication: EPILEPSY

REACTIONS (4)
  - Intentional overdose [Unknown]
  - Hypocalcaemia [Unknown]
  - Suicide attempt [Unknown]
  - Vitamin D deficiency [Unknown]
